FAERS Safety Report 10609903 (Version 1)
Quarter: 2014Q4

REPORT INFORMATION
  Report Type: Spontaneous
  Country: US (occurrence: US)
  Receive Date: 20141126
  Receipt Date: 20141126
  Transmission Date: 20150529
  Serious: Yes (Hospitalization)
  Sender: FDA-Public Use
  Company Number: US-JNJFOC-20141114353

PATIENT

DRUGS (3)
  1. ALL OTHER THERAPEUTIC PRODUCTS [Concomitant]
     Active Substance: UNSPECIFIED INGREDIENT
     Indication: DURAL TEAR
     Route: 065
  2. HUMAN CLOTTABLE PROTEIN/HUMAN THROMBIN [Suspect]
     Active Substance: FIBRINOGEN HUMAN\THROMBIN HUMAN
     Indication: DURAL TEAR
     Route: 061
  3. COLLAGEN [Suspect]
     Active Substance: COLLAGEN
     Indication: DURAL TEAR
     Route: 065

REACTIONS (2)
  - Off label use [Unknown]
  - Cerebrospinal fluid leakage [Unknown]
